FAERS Safety Report 22167688 (Version 1)
Quarter: 2023Q2

REPORT INFORMATION
  Report Type: Report from Study
  Country: IE (occurrence: IE)
  Receive Date: 20230403
  Receipt Date: 20230403
  Transmission Date: 20230721
  Serious: Yes (Hospitalization)
  Sender: FDA-Public Use
  Company Number: IE-TAKEDA-2023TUS011094

PATIENT
  Age: 48 Year
  Sex: Male

DRUGS (8)
  1. VEDOLIZUMAB [Suspect]
     Active Substance: VEDOLIZUMAB
     Indication: Crohn^s disease
     Dosage: 108 MILLIGRAM
     Route: 058
     Dates: start: 20220926
  2. VENLAFAXINE HYDROCHLORIDE [Concomitant]
     Active Substance: VENLAFAXINE HYDROCHLORIDE
     Dosage: 150 MILLIGRAM, QD
     Route: 050
  3. NEXAZOLE [Concomitant]
     Dosage: 40 MILLIGRAM, QD
     Route: 050
  4. CRESTOR [Concomitant]
     Active Substance: ROSUVASTATIN CALCIUM
     Dosage: 10 MILLIGRAM, QD
     Route: 050
  5. COLESEVELAM HYDROCHLORIDE [Concomitant]
     Active Substance: COLESEVELAM HYDROCHLORIDE
     Dosage: 625 MILLIGRAM, BID
     Route: 050
  6. Sibelium [Concomitant]
     Dosage: 5 MILLIGRAM, QD
     Route: 050
  7. NOVORAPID [Concomitant]
     Active Substance: INSULIN ASPART
     Dosage: UNK UNK, TID
     Route: 050
  8. LEVEMIR [Concomitant]
     Active Substance: INSULIN DETEMIR
     Dosage: UNK UNK, QD
     Route: 050

REACTIONS (5)
  - Drug hypersensitivity [Recovering/Resolving]
  - Depressed mood [Recovering/Resolving]
  - Nasal dryness [Not Recovered/Not Resolved]
  - Rhinalgia [Not Recovered/Not Resolved]
  - Epistaxis [Not Recovered/Not Resolved]

NARRATIVE: CASE EVENT DATE: 20221201
